FAERS Safety Report 8505428-6 (Version None)
Quarter: 2012Q2

REPORT INFORMATION
  Report Type: 
  Country: None (occurrence: None)
  Receive Date: 20120405
  Receipt Date: 20091012
  Transmission Date: 20120825
  Serious: Yes (Other)
  Sender: FDA-Public Use
  Company Number: PHEH2009US13559

PATIENT
  Age: 71 Year
  Sex: Female

DRUGS (4)
  1. ALPHAGAN P [Concomitant]
  2. ICAPS (MINERALS NOS, VITAMINS NOS) [Concomitant]
  3. RECLAST [Suspect]
     Dosage: UNK, INFUSION
     Dates: start: 20080909, end: 20080909
  4. CALCIUM CARBONATE [Concomitant]

REACTIONS (1)
  - OSTEONECROSIS [None]
